FAERS Safety Report 5427530-8 (Version None)
Quarter: 2007Q3

REPORT INFORMATION
  Report Type: 
  Country: None (occurrence: None)
  Receive Date: 20070828
  Receipt Date: 20070820
  Transmission Date: 20080115
  Serious: Yes (Other)
  Sender: FDA-Public Use
  Company Number: NZ-ASTRAZENECA-2007AC01558

PATIENT
  Age: 44 Year
  Sex: Male

DRUGS (9)
  1. METOPROLOL CR [Suspect]
     Indication: SINUS TACHYCARDIA
     Route: 048
  2. METOPROLOL CR [Suspect]
     Route: 048
  3. METHADONE HCL [Concomitant]
     Indication: DRUG WITHDRAWAL MAINTENANCE THERAPY
     Route: 048
  4. METHADONE HCL [Concomitant]
     Dosage: DOSE REDUCED DURING EVENT
     Route: 048
  5. MEROPENEM [Concomitant]
     Route: 042
  6. PARACETAMOL [Concomitant]
  7. AMITRIPTYLINE HCL [Concomitant]
  8. ONDANSETRON [Concomitant]
  9. OMEPRAZOLE [Concomitant]

REACTIONS (1)
  - HYPERKALAEMIA [None]
